FAERS Safety Report 17457129 (Version 1)
Quarter: 2020Q1

REPORT INFORMATION
  Report Type: Spontaneous
  Country: DK (occurrence: DK)
  Receive Date: 20200225
  Receipt Date: 20200225
  Transmission Date: 20200409
  Serious: Yes (Death, Life-Threatening)
  Sender: FDA-Public Use
  Company Number: DK-ROCHE-2554421

PATIENT
  Age: 76 Year
  Sex: Male

DRUGS (4)
  1. SIMVASTATIN. [Concomitant]
     Active Substance: SIMVASTATIN
     Indication: HYPERCHOLESTEROLAEMIA
     Route: 048
  2. METFORMIN [Concomitant]
     Active Substance: METFORMIN HYDROCHLORIDE
     Indication: TYPE 2 DIABETES MELLITUS
     Route: 048
  3. ACTILYSE [Suspect]
     Active Substance: ALTEPLASE
     Indication: TRANSIENT ISCHAEMIC ATTACK
     Route: 042
     Dates: start: 20200128
  4. ENALAPRIL [Concomitant]
     Active Substance: ENALAPRIL
     Indication: HYPERTENSION
     Route: 048
     Dates: start: 20170607

REACTIONS (7)
  - Subarachnoid haemorrhage [Fatal]
  - Haemorrhage intracranial [Fatal]
  - Oedema [Fatal]
  - Eye movement disorder [Unknown]
  - Facial paresis [Not Recovered/Not Resolved]
  - Brain midline shift [Fatal]
  - Hemiparesis [Not Recovered/Not Resolved]

NARRATIVE: CASE EVENT DATE: 20200128
